FAERS Safety Report 4648002-4 (Version None)
Quarter: 2005Q2

REPORT INFORMATION
  Report Type: 
  Country: None (occurrence: None)
  Receive Date: 20050331
  Receipt Date: 20050117
  Transmission Date: 20051028
  Serious: No
  Sender: FDA-Public Use
  Company Number: 05P-163-0287059-00

PATIENT
  Age: 58 Year
  Sex: Female
  Weight: 93.18 kg

DRUGS (26)
  1. HUMIRA [Suspect]
     Indication: RHEUMATOID ARTHRITIS
     Dosage: 40 MG, 1 IN 1 WK, SUBCUTANEOUS; SEE IMAGE
     Route: 058
     Dates: start: 20040204, end: 20040301
  2. HUMIRA [Suspect]
     Indication: RHEUMATOID ARTHRITIS
     Dosage: 40 MG, 1 IN 1 WK, SUBCUTANEOUS; SEE IMAGE
     Route: 058
     Dates: start: 20040301
  3. ESTROGENS CONJUGATED [Concomitant]
  4. LEVOTHYROXINE SODIUM [Concomitant]
  5. OXYGEN [Concomitant]
  6. LIDODERM PATCH [Concomitant]
  7. SERAQUEN [Concomitant]
  8. CYANOCOBALAMIN [Concomitant]
  9. PRIMROSE OIL [Concomitant]
  10. IRON [Concomitant]
  11. EPOGEN [Concomitant]
  12. KLOR-CON [Concomitant]
  13. FUROSEMIDE [Concomitant]
  14. GABAPENTIN [Concomitant]
  15. ESOMEPRAZOLE [Concomitant]
  16. OXYCODONE HCL [Concomitant]
  17. PERCODAN [Concomitant]
  18. HYDROXYCHLOROQUINE PHOSPHATE [Concomitant]
  19. PREDNISONE [Concomitant]
  20. FEXOFENADINE HYDROCHLORIDE [Concomitant]
  21. SALBUTAMOL [Concomitant]
  22. SERETIDE MITE [Concomitant]
  23. CARDIZEM LA [Concomitant]
  24. CALCIUM GLUCONATE [Concomitant]
  25. LOSARTAN POTASSIUM [Concomitant]
  26. VENLAFAXINE HCL [Concomitant]

REACTIONS (2)
  - CYSTITIS [None]
  - DIABETES MELLITUS [None]
